FAERS Safety Report 8515187-9 (Version None)
Quarter: 2012Q3

REPORT INFORMATION
  Report Type: 
  Country: None (occurrence: None)
  Receive Date: 20120717
  Receipt Date: 20120710
  Transmission Date: 20120928
  Serious: No
  Sender: FDA-Public Use
  Company Number: JP-GLAXOSMITHKLINE-B0808387A

PATIENT
  Age: 63 Year
  Sex: Male

DRUGS (7)
  1. KEPPRA [Concomitant]
     Indication: EPILEPSY
     Route: 065
  2. EMILACE (NEMONAPRIDE) [Concomitant]
     Route: 048
     Dates: end: 20120611
  3. VALPROATE SODIUM [Concomitant]
     Route: 048
     Dates: end: 20120611
  4. BARNETIL [Concomitant]
     Route: 048
     Dates: end: 20120611
  5. TASMOLIN [Concomitant]
     Route: 048
     Dates: end: 20120611
  6. LAMICTAL [Suspect]
     Indication: EPILEPSY
     Dosage: 100MG PER DAY
     Route: 048
     Dates: start: 20120511, end: 20120611
  7. PROMETHAZINE HCL [Concomitant]
     Route: 048
     Dates: end: 20120611

REACTIONS (2)
  - BLOOD CREATINE PHOSPHOKINASE INCREASED [None]
  - MUSCLE TIGHTNESS [None]
